FAERS Safety Report 9187098 (Version 3)
Quarter: 2014Q1

REPORT INFORMATION
  Report Type: Spontaneous
  Country: US (occurrence: US)
  Receive Date: 20130325
  Receipt Date: 20140310
  Transmission Date: 20141002
  Serious: No
  Sender: FDA-Public Use
  Company Number: US-ASTRAZENECA-2012SE80204

PATIENT
  Age: 51 Year
  Sex: Female
  Weight: 70.3 kg

DRUGS (6)
  1. NEXIUM [Suspect]
     Indication: GASTROOESOPHAGEAL REFLUX DISEASE
     Route: 048
     Dates: start: 2003, end: 20131213
  2. NEXIUM [Suspect]
     Indication: GASTROOESOPHAGEAL REFLUX DISEASE
     Route: 048
     Dates: start: 20131216
  3. CRESTOR [Suspect]
     Indication: BLOOD CHOLESTEROL INCREASED
     Route: 048
     Dates: start: 201309
  4. ESPARTAN [Concomitant]
     Indication: HORMONE REPLACEMENT THERAPY
  5. CITALOPRAM [Concomitant]
     Indication: STRESS
  6. ARMIPRIL [Concomitant]
     Indication: BLOOD PRESSURE

REACTIONS (4)
  - Feeling abnormal [Unknown]
  - Blood pressure abnormal [Unknown]
  - Blood cholesterol increased [Unknown]
  - Drug dose omission [Unknown]
